FAERS Safety Report 6819250-X (Version None)
Quarter: 2010Q2

REPORT INFORMATION
  Report Type: 
  Country: None (occurrence: None)
  Receive Date: 20100630
  Receipt Date: 20100616
  Transmission Date: 20101027
  Serious: Yes (Hospitalization)
  Sender: FDA-Public Use
  Company Number: 2010002142

PATIENT
  Age: 58 Year
  Sex: Female

DRUGS (6)
  1. TARCEVA [Suspect]
     Indication: NON-SMALL CELL LUNG CANCER
     Dosage: 150 MG, QD, ORAL
     Route: 048
     Dates: start: 20100401
  2. COLACE (DOCUSATE SODIUM) [Concomitant]
  3. SENOKOT [Concomitant]
  4. AMITRIPTYLINE HYDROCHLORIDE [Concomitant]
  5. ZOFRAN [Concomitant]
  6. COMPAZINE [Concomitant]

REACTIONS (9)
  - BILE DUCT CANCER [None]
  - DEEP VEIN THROMBOSIS [None]
  - DEPRESSION [None]
  - HYPERCALCAEMIA [None]
  - METASTATIC NEOPLASM [None]
  - NAUSEA [None]
  - OSTEOPOROSIS [None]
  - PAIN [None]
  - VOMITING [None]
